FAERS Safety Report 17397833 (Version 1)
Quarter: 2020Q1

REPORT INFORMATION
  Report Type: Report from Study
  Country: CA (occurrence: CA)
  Receive Date: 20200210
  Receipt Date: 20200210
  Transmission Date: 20200409
  Serious: Yes (Other)
  Sender: FDA-Public Use
  Company Number: CA-JNJFOC-20200108548

PATIENT
  Age: 69 Year
  Sex: Female

DRUGS (1)
  1. SIMPONI [Suspect]
     Active Substance: GOLIMUMAB
     Indication: COLITIS ULCERATIVE
     Dosage: STRENGTH = 100 MG
     Route: 058
     Dates: start: 20190725

REACTIONS (6)
  - Haematochezia [Unknown]
  - Diarrhoea [Not Recovered/Not Resolved]
  - Proctalgia [Unknown]
  - Decreased appetite [Unknown]
  - Infection [Recovering/Resolving]
  - Abdominal pain lower [Not Recovered/Not Resolved]

NARRATIVE: CASE EVENT DATE: 20200103
